FAERS Safety Report 19876924 (Version 1)
Quarter: 2021Q3

REPORT INFORMATION
  Report Type: Spontaneous
  Country: US (occurrence: US)
  Receive Date: 20210924
  Receipt Date: 20210924
  Transmission Date: 20211014
  Serious: No
  Sender: FDA-Public Use
  Company Number: US-ADDMEDICA-2021000073

PATIENT
  Age: 2 Year
  Sex: Male

DRUGS (2)
  1. SIKLOS [Suspect]
     Active Substance: HYDROXYUREA
     Route: 065
     Dates: start: 202109
  2. SIKLOS [Suspect]
     Active Substance: HYDROXYUREA
     Route: 065
     Dates: start: 202104, end: 202106

REACTIONS (1)
  - Rash [Recovered/Resolved]

NARRATIVE: CASE EVENT DATE: 202106
